FAERS Safety Report 6446114-6 (Version None)
Quarter: 2009Q4

REPORT INFORMATION
  Report Type: 
  Country: None (occurrence: None)
  Receive Date: 20091118
  Receipt Date: 20091118
  Transmission Date: 20100525
  Serious: No
  Sender: FDA-Public Use
  Company Number: None

PATIENT
  Age: 84 Year
  Sex: Male
  Weight: 78.2 kg

DRUGS (1)
  1. HALOPERIDOL [Suspect]
     Indication: AGITATION
     Dosage: 1MG X1 IVP; 5MG X2 IVP
     Route: 042
     Dates: start: 20091012

REACTIONS (2)
  - BELLIGERENCE [None]
  - DELIRIUM [None]
